FAERS Safety Report 7301439-7 (Version None)
Quarter: 2011Q1

REPORT INFORMATION
  Report Type: 
  Country: None (occurrence: None)
  Receive Date: 20110113
  Receipt Date: 20100916
  Transmission Date: 20110831
  Serious: No
  Sender: FDA-Public Use
  Company Number: PR-001347

PATIENT
  Sex: Male
  Weight: 48.0813 kg

DRUGS (2)
  1. KUVAN [Suspect]
     Indication: PHENYLKETONURIA
     Dosage: 900 MG QD ORAL, 900 MG QD ORAL
     Route: 048
     Dates: start: 20090101, end: 20100701
  2. KUVAN [Suspect]
     Indication: PHENYLKETONURIA
     Dosage: 900 MG QD ORAL, 900 MG QD ORAL
     Route: 048
     Dates: start: 20100901

REACTIONS (1)
  - RASH [None]
